FAERS Safety Report 8762819 (Version 1)
Quarter: 2012Q4

REPORT INFORMATION
  Report Type: 
  Country: SE (occurrence: SE)
  Receive Date: 20120830
  Receipt Date: 20120830
  Transmission Date: 20130627
  Serious: Yes (Other)
  Sender: FDA-Public Use
  Company Number: SE-PFIZER INC-2012208391

PATIENT
  Age: 69 Year
  Sex: Female

DRUGS (1)
  1. ALFADIL [Suspect]
     Indication: HYPERTENSION
     Dosage: 4 mg, 1x/day

REACTIONS (6)
  - Hypersensitivity [Unknown]
  - Throat tightness [Unknown]
  - Hypoaesthesia [Unknown]
  - Gingival pain [Unknown]
  - Paraesthesia [Unknown]
  - Hypoaesthesia oral [Unknown]
